FAERS Safety Report 18368213 (Version 1)
Quarter: 2020Q4

REPORT INFORMATION
  Report Type: Spontaneous
  Country: US (occurrence: US)
  Receive Date: 20201009
  Receipt Date: 20201009
  Transmission Date: 20210114
  Serious: No
  Sender: FDA-Public Use
  Company Number: US-SA-2020SA275188

PATIENT

DRUGS (1)
  1. LANTUS SOLOSTAR [Suspect]
     Active Substance: INSULIN GLARGINE
     Dosage: 30 IU, QD
     Route: 065

REACTIONS (1)
  - Visual impairment [Unknown]

NARRATIVE: CASE EVENT DATE: 20201005
